FAERS Safety Report 4899260-2 (Version None)
Quarter: 2006Q1

REPORT INFORMATION
  Report Type: 
  Country: None (occurrence: None)
  Receive Date: 20060131
  Receipt Date: 20060119
  Transmission Date: 20060701
  Serious: Yes (Hospitalization, Other)
  Sender: FDA-Public Use
  Company Number: HQWYE523619SEP05

PATIENT
  Age: 68 Year
  Sex: Male

DRUGS (9)
  1. CORDARONE [Suspect]
     Indication: VENTRICULAR TACHYCARDIA
     Dosage: SEE IMAGE
     Route: 048
     Dates: start: 20040901, end: 20041001
  2. CORDARONE [Suspect]
     Indication: VENTRICULAR TACHYCARDIA
     Dosage: SEE IMAGE
     Route: 048
     Dates: start: 20041001, end: 20041001
  3. CORDARONE [Suspect]
     Indication: VENTRICULAR TACHYCARDIA
     Dosage: SEE IMAGE
     Route: 048
     Dates: start: 20041001, end: 20050911
  4. CONCOR (BISOPROLOL) [Concomitant]
  5. TELMISARTAN (TELMISARTAN) [Concomitant]
  6. TORSEMIDE [Concomitant]
  7. ISMO - SLOW RELEASE (ISOSORBIDE MONONITRATE) [Concomitant]
  8. PLAVIX [Concomitant]
  9. AMARYL [Concomitant]

REACTIONS (5)
  - BRADYCARDIA [None]
  - BRONCHOPNEUMONIA [None]
  - CHEST PAIN [None]
  - DRUG EFFECT DECREASED [None]
  - SINUS BRADYCARDIA [None]
